FAERS Safety Report 17712572 (Version 5)
Quarter: 2020Q4

REPORT INFORMATION
  Report Type: Spontaneous
  Country: US (occurrence: US)
  Receive Date: 20200427
  Receipt Date: 20201208
  Transmission Date: 20210113
  Serious: Yes (Hospitalization, Other)
  Sender: FDA-Public Use
  Company Number: US-PFIZER INC-2020168818

PATIENT
  Age: 62 Year
  Sex: Female
  Weight: 117.93 kg

DRUGS (2)
  1. PREDNISONE [PREDNISONE ACETATE] [Concomitant]
     Active Substance: PREDNISONE ACETATE
     Dosage: UNK
  2. XELJANZ XR [Suspect]
     Active Substance: TOFACITINIB CITRATE
     Dosage: 11 MG, 1X/DAY
     Dates: start: 2019

REACTIONS (10)
  - Chest pain [Recovered/Resolved]
  - Atrial fibrillation [Recovered/Resolved]
  - Enzyme abnormality [Recovered/Resolved]
  - Von Willebrand^s disease [Unknown]
  - Pulmonary hypertension [Unknown]
  - Pain [Unknown]
  - Illness [Unknown]
  - Viral infection [Recovered/Resolved]
  - Blood iron decreased [Unknown]
  - Myocardial infarction [Unknown]

NARRATIVE: CASE EVENT DATE: 202006
